FAERS Safety Report 10817347 (Version 1)
Quarter: 2015Q1

REPORT INFORMATION
  Report Type: Report from Study
  Country: US (occurrence: US)
  Receive Date: 20150218
  Receipt Date: 20150218
  Transmission Date: 20150721
  Serious: No
  Sender: FDA-Public Use
  Company Number: US-ABBVIE-14K-163-1287871-00

PATIENT
  Age: 67 Year
  Sex: Male
  Weight: 99.88 kg

DRUGS (13)
  1. METAMUCIL [Concomitant]
     Active Substance: PLANTAGO SEED
     Indication: SUPPLEMENTATION THERAPY
  2. VITAMIN D [Concomitant]
     Active Substance: CHOLECALCIFEROL
     Indication: VITAMIN SUPPLEMENTATION
  3. VITAMIN C [Concomitant]
     Active Substance: ASCORBIC ACID
     Indication: VITAMIN SUPPLEMENTATION
  4. ENBREL [Concomitant]
     Active Substance: ETANERCEPT
     Indication: PRODUCT USED FOR UNKNOWN INDICATION
     Dates: start: 201407
  5. OMEPRAZOLE. [Concomitant]
     Active Substance: OMEPRAZOLE
     Indication: GASTROOESOPHAGEAL REFLUX DISEASE
  6. VITAMIN B12 [Concomitant]
     Active Substance: CYANOCOBALAMIN
     Indication: VITAMIN SUPPLEMENTATION
  7. AMOXICILLIN/CLAVULANIC ACID [Suspect]
     Active Substance: AMOXICILLIN\CLAVULANIC ACID
     Indication: UPPER RESPIRATORY TRACT INFECTION
  8. PROBIOTICS [Concomitant]
     Active Substance: PROBIOTICS NOS
     Indication: SUPPLEMENTATION THERAPY
  9. NIFEDIAC CC [Concomitant]
     Active Substance: NIFEDIPINE
     Indication: BLOOD PRESSURE
  10. GEMFIBROZIL. [Concomitant]
     Active Substance: GEMFIBROZIL
     Indication: PRODUCT USED FOR UNKNOWN INDICATION
  11. HYDROCHLOROTHIAZIDE. [Concomitant]
     Active Substance: HYDROCHLOROTHIAZIDE
     Indication: BLOOD PRESSURE
  12. HUMIRA [Suspect]
     Active Substance: ADALIMUMAB
     Indication: ANKYLOSING SPONDYLITIS
     Dates: start: 201305, end: 2014
  13. TYLENOL [Concomitant]
     Active Substance: ACETAMINOPHEN
     Indication: PAIN

REACTIONS (4)
  - Diarrhoea [Recovered/Resolved]
  - Psoriasis [Not Recovered/Not Resolved]
  - Upper respiratory tract infection [Recovered/Resolved]
  - Rash macular [Not Recovered/Not Resolved]

NARRATIVE: CASE EVENT DATE: 2014
